FAERS Safety Report 7770510-8 (Version None)
Quarter: 2011Q3

REPORT INFORMATION
  Report Type: 
  Country: None (occurrence: None)
  Receive Date: 20110922
  Receipt Date: 20110331
  Transmission Date: 20111222
  Serious: No
  Sender: FDA-Public Use
  Company Number: US-ASTRAZENECA-2011SE18480

PATIENT
  Age: 17803 Day
  Sex: Female
  Weight: 77.1 kg

DRUGS (5)
  1. CLONAZEPAM [Concomitant]
     Indication: ANXIETY
  2. PAXIL [Concomitant]
     Indication: DEPRESSION
  3. SEROQUEL XR [Suspect]
     Indication: SLEEP DISORDER
     Route: 048
     Dates: start: 20110321, end: 20110325
  4. PAXIL [Concomitant]
     Indication: ANXIETY
  5. NEXIUM [Concomitant]
     Indication: HIATUS HERNIA

REACTIONS (5)
  - DRUG DOSE OMISSION [None]
  - OFF LABEL USE [None]
  - NO ADVERSE EVENT [None]
  - THERAPEUTIC RESPONSE UNEXPECTED [None]
  - INSOMNIA [None]
